FAERS Safety Report 5621900-0 (Version None)
Quarter: 2008Q1

REPORT INFORMATION
  Report Type: 
  Country: None (occurrence: None)
  Receive Date: 20080211
  Receipt Date: 20080103
  Transmission Date: 20080703
  Serious: No
  Sender: FDA-Public Use
  Company Number: US-BRISTOL-MYERS SQUIBB COMPANY-14031223

PATIENT
  Sex: Female

DRUGS (5)
  1. IXEMPRA FOR INJ [Suspect]
     Indication: BREAST CANCER
     Route: 042
     Dates: start: 20071226
  2. ZOMETA [Concomitant]
  3. KYTRIL [Concomitant]
     Route: 042
     Dates: start: 20071226
  4. DECADRON [Concomitant]
     Route: 042
     Dates: start: 20071226
  5. BENADRYL [Concomitant]
     Route: 042
     Dates: start: 20071226

REACTIONS (5)
  - FATIGUE [None]
  - HOT FLUSH [None]
  - HYPERHIDROSIS [None]
  - NAUSEA [None]
  - VOMITING [None]
